FAERS Safety Report 11062567 (Version 2)
Quarter: 2015Q2

REPORT INFORMATION
  Report Type: Spontaneous
  Country: CN (occurrence: None)
  Receive Date: 20150422
  Receipt Date: 20150625
  Transmission Date: 20150821
  Serious: Yes (Other)
  Sender: FDA-Public Use
  Company Number: CN-2015VAL000265

PATIENT
  Age: 53 Year
  Sex: Female
  Weight: 64 kg

DRUGS (1)
  1. LOTENSIN HCT [Suspect]
     Active Substance: BENAZEPRIL HYDROCHLORIDE\HYDROCHLOROTHIAZIDE
     Indication: ESSENTIAL HYPERTENSION
     Route: 048
     Dates: start: 20140804, end: 20140805

REACTIONS (7)
  - Hypertension [None]
  - Left ventricular hypertrophy [None]
  - Dizziness [None]
  - QRS axis abnormal [None]
  - Cough [None]
  - Headache [None]
  - Oedema peripheral [None]

NARRATIVE: CASE EVENT DATE: 20140804
